FAERS Safety Report 9031569 (Version 2)
Quarter: 2013Q1

REPORT INFORMATION
  Report Type: Report from Study
  Country: AU (occurrence: AU)
  Receive Date: 20130124
  Receipt Date: 20130322
  Transmission Date: 20140127
  Serious: Yes (Other)
  Sender: FDA-Public Use
  Company Number: AU-ROCHE-1181986

PATIENT
  Age: 65 Year
  Sex: Male
  Weight: 59 kg

DRUGS (2)
  1. VEMURAFENIB [Suspect]
     Indication: METASTATIC MALIGNANT MELANOMA
     Route: 048
     Dates: start: 20121130, end: 20130114
  2. OMEPRAZOLE [Concomitant]
     Route: 048
     Dates: start: 20121130, end: 20130114

REACTIONS (2)
  - Dermatitis exfoliative [Recovering/Resolving]
  - Disease progression [Unknown]
